FAERS Safety Report 23119424 (Version 2)
Quarter: 2024Q1

REPORT INFORMATION
  Report Type: Report from Study
  Country: KR (occurrence: KR)
  Receive Date: 20231028
  Receipt Date: 20240123
  Transmission Date: 20240409
  Serious: Yes (Death, Hospitalization, Other)
  Sender: FDA-Public Use
  Company Number: KR-TAKEDA-2023TUS075773

PATIENT
  Age: 67 Year
  Sex: Male

DRUGS (1)
  1. BRIGATINIB [Suspect]
     Active Substance: BRIGATINIB
     Indication: Non-small cell lung cancer
     Dosage: 90 MILLIGRAM, QD
     Route: 048
     Dates: start: 20230106, end: 20230731

REACTIONS (4)
  - Non-small cell lung cancer [Fatal]
  - General physical health deterioration [Fatal]
  - Cough [Recovering/Resolving]
  - Inflammatory marker increased [Unknown]

NARRATIVE: CASE EVENT DATE: 20230701
